FAERS Safety Report 10668776 (Version 7)
Quarter: 2015Q3

REPORT INFORMATION
  Report Type: Spontaneous
  Country: US (occurrence: US)
  Receive Date: 20141222
  Receipt Date: 20150930
  Transmission Date: 20151125
  Serious: Yes (Hospitalization, Other)
  Sender: FDA-Public Use
  Company Number: US-PFIZER INC-2014074607

PATIENT
  Age: 54 Year
  Sex: Female
  Weight: 50 kg

DRUGS (9)
  1. LYRICA [Suspect]
     Active Substance: PREGABALIN
     Indication: NEUROPATHY PERIPHERAL
     Dosage: UNK, 2X/DAY
  2. XANAX [Concomitant]
     Active Substance: ALPRAZOLAM
     Indication: INSOMNIA
     Dosage: 0.05 MG, 1X/DAY (AT LEAST 1600 MG A DAY)
  3. XANAX [Concomitant]
     Active Substance: ALPRAZOLAM
     Indication: ANXIETY
  4. IBUPROFEN. [Concomitant]
     Active Substance: IBUPROFEN
     Indication: PAIN
     Dosage: 20 MG, UNK
  5. LYRICA [Suspect]
     Active Substance: PREGABALIN
     Dosage: 900 MG, DAILY
  6. LYRICA [Suspect]
     Active Substance: PREGABALIN
     Dosage: 150 MG, 2X/DAY
  7. MOBIC [Concomitant]
     Active Substance: MELOXICAM
     Dosage: UNK
  8. HYDROCODONE BITARTRATE AND ACETAMINOPHEN [Concomitant]
     Active Substance: ACETAMINOPHEN\HYDROCODONE BITARTRATE
     Dosage: UNK, 4X/DAY
  9. ALPRAZOLAM. [Concomitant]
     Active Substance: ALPRAZOLAM
     Dosage: UNK

REACTIONS (10)
  - Infection [Unknown]
  - Urinary tract infection [Unknown]
  - Feeling abnormal [Recovered/Resolved]
  - Nervousness [Unknown]
  - Drug ineffective [Unknown]
  - Intervertebral disc protrusion [Not Recovered/Not Resolved]
  - Suicide attempt [Recovered/Resolved]
  - Crying [Not Recovered/Not Resolved]
  - Transient ischaemic attack [Unknown]
  - Accidental overdose [Unknown]
